FAERS Safety Report 4778962-2 (Version None)
Quarter: 2005Q3

REPORT INFORMATION
  Report Type: 
  Country: None (occurrence: None)
  Receive Date: 20050922
  Receipt Date: 20050906
  Transmission Date: 20060218
  Serious: Yes (Hospitalization)
  Sender: FDA-Public Use
  Company Number: 12232

PATIENT
  Age: 9 Year
  Sex: Female

DRUGS (1)
  1. METHOTREXATE [Suspect]

REACTIONS (3)
  - DRUG CLEARANCE DECREASED [None]
  - DRUG LEVEL INCREASED [None]
  - RENAL IMPAIRMENT [None]
